FAERS Safety Report 9371037 (Version 2)
Quarter: 2013Q3

REPORT INFORMATION
  Report Type: Report from Study
  Country: US (occurrence: US)
  Receive Date: 20130627
  Receipt Date: 20130926
  Transmission Date: 20140515
  Serious: Yes (Death, Other)
  Sender: FDA-Public Use
  Company Number: US-ALEXION PHARMACEUTICALS INC.-A201301449

PATIENT
  Age: 70 Year
  Sex: Male

DRUGS (3)
  1. SOLIRIS [Suspect]
     Indication: HAEMOLYTIC URAEMIC SYNDROME
     Route: 042
  2. ATIVAN [Suspect]
  3. HALDOL [Suspect]
     Indication: DELIRIUM

REACTIONS (5)
  - Death [Fatal]
  - Pulmonary hypertension [Not Recovered/Not Resolved]
  - Cognitive disorder [Not Recovered/Not Resolved]
  - Delirium [Not Recovered/Not Resolved]
  - Restlessness [Not Recovered/Not Resolved]
